FAERS Safety Report 5621828-6 (Version None)
Quarter: 2008Q1

REPORT INFORMATION
  Report Type: 
  Country: None (occurrence: None)
  Receive Date: 20080206
  Receipt Date: 20080125
  Transmission Date: 20080703
  Serious: Yes (Other)
  Sender: FDA-Public Use
  Company Number: 2008AP000281

PATIENT
  Age: 35 Year
  Sex: Male

DRUGS (4)
  1. PAROXETINE HCL [Suspect]
     Indication: DEPRESSION
     Dosage: 4 MG; PO; QD
     Route: 048
     Dates: start: 20011025
  2. PAROXETINE HCL [Suspect]
     Indication: DEPRESSION
     Dosage: 4 MG; PO; QD
     Route: 048
     Dates: start: 20011025
  3. PAROXETINE HCL [Suspect]
     Indication: DEPRESSION
     Dosage: 4 MG; PO; QD
     Route: 048
     Dates: start: 20061026
  4. REBOXETINE (REBOXETINE) [Concomitant]

REACTIONS (22)
  - AGGRESSION [None]
  - AGITATION [None]
  - ANXIETY [None]
  - DEPRESSED MOOD [None]
  - DEPRESSION [None]
  - DISTURBANCE IN ATTENTION [None]
  - DIZZINESS [None]
  - DRUG WITHDRAWAL SYNDROME [None]
  - FATIGUE [None]
  - FEELING ABNORMAL [None]
  - FLAT AFFECT [None]
  - HEADACHE [None]
  - INFLUENZA LIKE ILLNESS [None]
  - LETHARGY [None]
  - MEMORY IMPAIRMENT [None]
  - MOOD ALTERED [None]
  - NEGATIVISM [None]
  - NIGHTMARE [None]
  - PANIC ATTACK [None]
  - PARAESTHESIA [None]
  - SLEEP DISORDER [None]
  - SUICIDAL IDEATION [None]
